FAERS Safety Report 8886123 (Version 1)
Quarter: 2012Q4

REPORT INFORMATION
  Report Type: 
  Country: DE (occurrence: DE)
  Receive Date: 20121105
  Receipt Date: 20121105
  Transmission Date: 20130627
  Serious: Yes (Death, Life-Threatening)
  Sender: FDA-Public Use
  Company Number: DE-ROCHE-1116758

PATIENT
  Age: 38 Year
  Sex: Female
  Weight: 110 kg

DRUGS (4)
  1. PEGASYS [Suspect]
     Indication: HEPATITIS C
     Dosage: ON 25/JUL/2012 (APPROXIMATELY), THERAPY WAS DISCONTINUED
     Route: 065
     Dates: start: 20110829
  2. COPEGUS [Suspect]
     Indication: HEPATITIS C
     Dosage: ON 25/JUL/2012 (APPROXIMATELY), THERAPY WAS DISCONTINUED
     Route: 065
     Dates: start: 20110829
  3. VICTRELIS [Suspect]
     Indication: HEPATITIS C
     Dosage: ON 25/JUL/2012 (APPROXIMATELY), THERAPY WAS DISCONTINUED
     Route: 065
     Dates: start: 20110829
  4. CITALOPRAM [Concomitant]
     Indication: DEPRESSION
     Route: 065

REACTIONS (2)
  - Death [Fatal]
  - General physical health deterioration [Not Recovered/Not Resolved]
